FAERS Safety Report 15015867 (Version 2)
Quarter: 2019Q3

REPORT INFORMATION
  Report Type: Spontaneous
  Country: FR (occurrence: FR)
  Receive Date: 20180615
  Receipt Date: 20190719
  Transmission Date: 20191004
  Serious: Yes (Hospitalization)
  Sender: FDA-Public Use
  Company Number: FR-AUROBINDO-AUR-APL-2018-031056

PATIENT

DRUGS (3)
  1. LOXAPAC [Suspect]
     Active Substance: LOXAPINE
     Indication: PSYCHOTIC DISORDER
     Dosage: 150 MILLIGRAM, ONCE A DAY
     Route: 048
     Dates: start: 20180419
  2. RISPERIDONE. [Suspect]
     Active Substance: RISPERIDONE
     Indication: PSYCHOTIC DISORDER
     Dosage: 4 MILLIGRAM, ONCE A DAY
     Route: 048
     Dates: start: 20180420
  3. LARGACTIL [Suspect]
     Active Substance: CHLORPROMAZINE
     Indication: PRODUCT USED FOR UNKNOWN INDICATION
     Dosage: 100 MILLIGRAM, ONCE A DAY
     Route: 048
     Dates: start: 20180427

REACTIONS (2)
  - Pulmonary embolism [Recovered/Resolved with Sequelae]
  - Pleural effusion [Recovered/Resolved]

NARRATIVE: CASE EVENT DATE: 20180426
